FAERS Safety Report 6234864-6 (Version None)
Quarter: 2009Q2

REPORT INFORMATION
  Report Type: 
  Country: None (occurrence: None)
  Receive Date: 20090615
  Receipt Date: 20090514
  Transmission Date: 20091009
  Serious: No
  Sender: FDA-Public Use
  Company Number: DSA_33646_2009

PATIENT
  Sex: Female

DRUGS (3)
  1. XENAZINE [Suspect]
     Indication: HUNTINGTON'S CHOREA
     Dosage: SEE IMAGE
     Dates: end: 20090322
  2. XENAZINE [Suspect]
     Indication: HUNTINGTON'S CHOREA
     Dosage: SEE IMAGE
     Dates: start: 20090323, end: 20090507
  3. XENAZINE [Suspect]
     Indication: HUNTINGTON'S CHOREA
     Dosage: SEE IMAGE
     Dates: start: 20090508

REACTIONS (3)
  - DRUG INEFFECTIVE [None]
  - PRODUCT QUALITY ISSUE [None]
  - SEDATION [None]
